FAERS Safety Report 10627145 (Version 1)
Quarter: 2014Q4

REPORT INFORMATION
  Report Type: Spontaneous
  Country: US (occurrence: US)
  Receive Date: 20141204
  Receipt Date: 20141204
  Transmission Date: 20150529
  Serious: No
  Sender: FDA-Public Use
  Company Number: US-GILEAD-2014-0125306

PATIENT
  Sex: Female

DRUGS (3)
  1. SOVALDI [Suspect]
     Active Substance: SOFOSBUVIR
     Indication: PRODUCT USED FOR UNKNOWN INDICATION
     Dosage: UNK
     Route: 065
     Dates: end: 201410
  2. RIBAVIRIN. [Concomitant]
     Active Substance: RIBAVIRIN
  3. PEG                                /01543001/ [Concomitant]
     Active Substance: PEGINTERFERON ALFA-2B

REACTIONS (1)
  - Alopecia [Unknown]
